FAERS Safety Report 20637930 (Version 1)
Quarter: 2022Q1

REPORT INFORMATION
  Report Type: Other
  Country: CA (occurrence: CA)
  Receive Date: 20220325
  Receipt Date: 20220325
  Transmission Date: 20220423
  Serious: Yes (Other)
  Sender: FDA-Public Use
  Company Number: CA-GLENMARK PHARMACEUTICALS-2022GMK071347

PATIENT

DRUGS (20)
  1. TOPIRAMATE [Suspect]
     Active Substance: TOPIRAMATE
     Indication: Migraine
     Dosage: 100 MILLIGRAM, BID (EVERY 12 HOURS)
     Route: 048
  2. ACETAMINOPHEN\CODEINE PHOSPHATE [Suspect]
     Active Substance: ACETAMINOPHEN\CODEINE PHOSPHATE
     Indication: Migraine
     Dosage: UNK
     Route: 065
  3. AIMOVIG [Suspect]
     Active Substance: ERENUMAB-AOOE
     Indication: Migraine
     Dosage: UNK
     Route: 065
  4. AIMOVIG [Suspect]
     Active Substance: ERENUMAB-AOOE
     Indication: Migraine
     Dosage: UNK
     Route: 065
  5. BOTULINUM TOXIN TYPE A [Suspect]
     Active Substance: BOTULINUM TOXIN TYPE A
     Indication: Migraine
     Dosage: UNK
     Route: 065
  6. CYCLOBENZAPRINE HYDROCHLORIDE [Suspect]
     Active Substance: CYCLOBENZAPRINE HYDROCHLORIDE
     Indication: Product used for unknown indication
     Dosage: UNK
     Route: 065
  7. ELAVIL [Suspect]
     Active Substance: AMITRIPTYLINE HYDROCHLORIDE
     Indication: Migraine
     Dosage: UNK
     Route: 065
  8. ERGOCALCIFEROL [Suspect]
     Active Substance: ERGOCALCIFEROL
     Indication: Migraine
     Dosage: UNK
     Route: 065
  9. GRAVOL [Suspect]
     Active Substance: DIMENHYDRINATE
     Indication: Migraine
     Dosage: UNK
     Route: 065
  10. HEXACHLOROPHENE [Suspect]
     Active Substance: HEXACHLOROPHENE
     Indication: Migraine
     Dosage: UNK
     Route: 065
  11. LIDOCAINE HYDROCHLORIDE [Suspect]
     Active Substance: LIDOCAINE HYDROCHLORIDE
     Indication: Migraine
     Dosage: UNK
     Route: 065
  12. MEFENAMIC ACID [Suspect]
     Active Substance: MEFENAMIC ACID
     Indication: Migraine
     Dosage: UNK
     Route: 065
  13. MORPHINE SULFATE [Suspect]
     Active Substance: MORPHINE SULFATE
     Indication: Migraine
     Dosage: UNK
     Route: 065
  14. NEURONTIN [Suspect]
     Active Substance: GABAPENTIN
     Indication: Migraine
     Dosage: UNK
     Route: 065
  15. NORTRIPTYLINE [Suspect]
     Active Substance: NORTRIPTYLINE
     Indication: Migraine
     Dosage: 1 DOSAGE FORM, OD
     Route: 065
  16. PROPRANOLOL HYDROCHLORIDE [Suspect]
     Active Substance: PROPRANOLOL HYDROCHLORIDE
     Indication: Migraine
     Dosage: 1 DOSAGE FORM
     Route: 065
  17. PROPRANOLOL HYDROCHLORIDE [Suspect]
     Active Substance: PROPRANOLOL HYDROCHLORIDE
     Indication: Migraine
     Dosage: 1 DOSAGE FORM
     Route: 065
  18. PYRIDOXINE\TRYPTOPHAN [Suspect]
     Active Substance: PYRIDOXINE\TRYPTOPHAN
     Indication: Migraine
     Dosage: UNK
     Route: 065
  19. ZOLMITRIPTAN [Suspect]
     Active Substance: ZOLMITRIPTAN
     Indication: Migraine
     Dosage: 1 DOSAGE FORM
     Route: 058
  20. DICLOFENAC POTASSIUM [Suspect]
     Active Substance: DICLOFENAC POTASSIUM

REACTIONS (20)
  - Discomfort [Unknown]
  - Drug intolerance [Unknown]
  - Mastoiditis [Unknown]
  - Product use in unapproved indication [Unknown]
  - Vascular malformation [Unknown]
  - Stress [Unknown]
  - Headache [Unknown]
  - Migraine [Unknown]
  - Otitis media [Unknown]
  - Hypotension [Unknown]
  - Paranasal cyst [Unknown]
  - Disturbance in attention [Unknown]
  - Dizziness [Unknown]
  - Drug ineffective [Unknown]
  - Fatigue [Unknown]
  - Myalgia [Unknown]
  - Nausea [Unknown]
  - Therapeutic response decreased [Unknown]
  - Therapy partial responder [Unknown]
  - Tremor [Unknown]
